FAERS Safety Report 23906375 (Version 1)
Quarter: 2024Q2

REPORT INFORMATION
  Report Type: Spontaneous
  Country: US (occurrence: US)
  Receive Date: 20240528
  Receipt Date: 20240528
  Transmission Date: 20240716
  Serious: No
  Sender: FDA-Public Use
  Company Number: US-Accord-413241

PATIENT
  Sex: Female

DRUGS (5)
  1. METHOTREXATE [Suspect]
     Active Substance: METHOTREXATE
     Indication: Product used for unknown indication
  2. AZATHIOPRINE [Concomitant]
     Active Substance: AZATHIOPRINE
  3. DIGOXIN [Concomitant]
     Active Substance: DIGOXIN
  4. RITUXAN [Concomitant]
     Active Substance: RITUXIMAB
  5. VALSARTAN [Concomitant]
     Active Substance: VALSARTAN

REACTIONS (3)
  - Fall [Unknown]
  - Herpes zoster [Unknown]
  - Skin wound [Not Recovered/Not Resolved]
